FAERS Safety Report 8496226 (Version 2)
Quarter: 2012Q4

REPORT INFORMATION
  Report Type: Report from Study
  Country: IT (occurrence: IT)
  Receive Date: 20120405
  Receipt Date: 20120913
  Transmission Date: 20130627
  Serious: Yes (Other)
  Sender: FDA-Public Use
  Company Number: IT-GLAXOSMITHKLINE-B0793497A

PATIENT
  Age: 47 Year
  Sex: Male

DRUGS (6)
  1. VOTRIENT [Suspect]
     Indication: RENAL CELL CARCINOMA
     Dosage: 800MG per day
     Route: 048
     Dates: start: 20110901, end: 20120101
  2. FUROSEMIDE [Concomitant]
     Dosage: 25MG per day
     Route: 048
     Dates: start: 20040420, end: 20120323
  3. CARVEDILOL [Concomitant]
     Dosage: 6.25MG per day
     Route: 048
     Dates: start: 20040420, end: 20120323
  4. ATORVASTATIN [Concomitant]
     Dosage: 10MG per day
     Route: 048
     Dates: start: 20040420, end: 20120323
  5. AMLODIPINE [Concomitant]
     Dosage: 10MG per day
     Route: 048
     Dates: start: 20040420, end: 20120323
  6. LASITONE [Concomitant]
     Route: 048
     Dates: start: 2004, end: 20120323

REACTIONS (1)
  - Pancreatitis [Recovering/Resolving]
